FAERS Safety Report 6656139-3 (Version None)
Quarter: 2010Q1

REPORT INFORMATION
  Report Type: 
  Country: None (occurrence: None)
  Receive Date: 20100329
  Receipt Date: 20100323
  Transmission Date: 20100710
  Serious: Yes (Death, Disabling)
  Sender: FDA-Public Use
  Company Number: JP-ASTRAZENECA-2010SE11813

PATIENT
  Age: 86 Year
  Sex: Male
  Weight: 58 kg

DRUGS (5)
  1. IRESSA [Suspect]
     Indication: LUNG ADENOCARCINOMA
     Route: 048
     Dates: start: 20100316, end: 20100317
  2. CARVEDILOL [Concomitant]
     Indication: HYPERTENSION
     Route: 048
     Dates: end: 20100317
  3. MUCOSAL-L [Concomitant]
     Indication: LARYNGEAL CANCER
     Route: 048
     Dates: end: 20100317
  4. URIEF [Concomitant]
     Indication: BENIGN PROSTATIC HYPERPLASIA
     Route: 048
     Dates: end: 20100317
  5. VESICARE [Concomitant]
     Indication: BENIGN PROSTATIC HYPERPLASIA
     Route: 048
     Dates: end: 20100317

REACTIONS (2)
  - CEREBRAL INFARCTION [None]
  - LUNG DISORDER [None]
